FAERS Safety Report 8732349 (Version 2)
Quarter: 2018Q2

REPORT INFORMATION
  Report Type: Spontaneous
  Country: US (occurrence: US)
  Receive Date: 20120820
  Receipt Date: 20180424
  Transmission Date: 20180711
  Serious: Yes (Hospitalization, Congenital Anomaly, Other)
  Sender: FDA-Public Use
  Company Number: US-GLAXOSMITHKLINE-A0990100A

PATIENT
  Age: 0 Day
  Sex: Male

DRUGS (1)
  1. PAXIL [Suspect]
     Active Substance: PAROXETINE HYDROCHLORIDE
     Indication: PRODUCT USED FOR UNKNOWN INDICATION
     Dosage: 20 MG, UNK
     Route: 064

REACTIONS (12)
  - Congenital cystic kidney disease [Unknown]
  - Hydronephrosis [Unknown]
  - Oppositional defiant disorder [Unknown]
  - Inguinal hernia [Unknown]
  - Renal dysplasia [Unknown]
  - Attention deficit/hyperactivity disorder [Unknown]
  - Talipes [Unknown]
  - Bicuspid aortic valve [Unknown]
  - Renal aplasia [Unknown]
  - Chronic kidney disease [Unknown]
  - Foetal exposure during pregnancy [Unknown]
  - Aortic dilatation [Unknown]

NARRATIVE: CASE EVENT DATE: 20030527
